FAERS Safety Report 6554289-3 (Version None)
Quarter: 2010Q1

REPORT INFORMATION
  Report Type: 
  Country: None (occurrence: None)
  Receive Date: 20100125
  Receipt Date: 20100125
  Transmission Date: 20100710
  Serious: No
  Sender: FDA-Public Use
  Company Number: None

PATIENT
  Age: 60 Year
  Sex: Male
  Weight: 107.5025 kg

DRUGS (1)
  1. PAROXETINE 40 MG SHOULD BE AVAILABLE THRU NDC # [Suspect]
     Indication: GENERALISED ANXIETY DISORDER
     Dosage: 40 MG DAILY PO
     Route: 048
     Dates: start: 20091125, end: 20100121

REACTIONS (3)
  - DIZZINESS [None]
  - FATIGUE [None]
  - HEADACHE [None]
